FAERS Safety Report 18486961 (Version 1)
Quarter: 2020Q4

REPORT INFORMATION
  Report Type: Spontaneous
  Country: US (occurrence: US)
  Receive Date: 20201110
  Receipt Date: 20201110
  Transmission Date: 20210114
  Serious: No
  Sender: FDA-Public Use
  Company Number: US-ASTRAZENECA-2020SF37970

PATIENT
  Sex: Male

DRUGS (1)
  1. BYDUREON BCISE [Suspect]
     Active Substance: EXENATIDE
     Indication: DIABETES MELLITUS
     Route: 058

REACTIONS (5)
  - Device malfunction [Unknown]
  - Frustration tolerance decreased [Unknown]
  - Circumstance or information capable of leading to medication error [Unknown]
  - Injection site pain [Unknown]
  - Wrong technique in device usage process [Unknown]
